FAERS Safety Report 7118644-5 (Version None)
Quarter: 2010Q4

REPORT INFORMATION
  Report Type: 
  Country: None (occurrence: None)
  Receive Date: 20101123
  Receipt Date: 20101118
  Transmission Date: 20110411
  Serious: Yes (Death, Hospitalization, Other)
  Sender: FDA-Public Use
  Company Number: PHHY2010BR78353

PATIENT
  Sex: Female
  Weight: 30 kg

DRUGS (3)
  1. FORASEQ [Suspect]
     Indication: EMPHYSEMA
     Dosage: 01 INHALATION WITH EACH ACTIVE PRINCIPLE TWICE DAILY
  2. NAPRIX [Concomitant]
     Indication: HYPERTENSION
     Dosage: 05 MG1 TABLET DAILY
     Route: 048
  3. AMLODIPINE BESYLATE [Concomitant]
     Indication: HYPERTENSION
     Dosage: 5 MG, 01 TABLET DAILY
     Route: 048

REACTIONS (2)
  - ACUTE RESPIRATORY FAILURE [None]
  - EMPHYSEMA [None]
